FAERS Safety Report 14206162 (Version 1)
Quarter: 2017Q4

REPORT INFORMATION
  Report Type: Report from Study
  Country: DE (occurrence: DE)
  Receive Date: 20171120
  Receipt Date: 20171120
  Transmission Date: 20180321
  Serious: Yes (Other)
  Sender: FDA-Public Use
  Company Number: DE-PURDUE-USA-2017-0141595

PATIENT

DRUGS (1)
  1. DRONABINOL CAPSULES [Suspect]
     Active Substance: DRONABINOL
     Indication: CENTRAL PAIN SYNDROME
     Dosage: UNK
     Route: 048

REACTIONS (3)
  - Central pain syndrome [Unknown]
  - Constipation [Unknown]
  - Dysphoria [Unknown]
